FAERS Safety Report 10218438 (Version 2)
Quarter: 2014Q2

REPORT INFORMATION
  Report Type: Spontaneous
  Country: HU (occurrence: HU)
  Receive Date: 20140605
  Receipt Date: 20140605
  Transmission Date: 20141212
  Serious: Yes (Hospitalization)
  Sender: FDA-Public Use
  Company Number: HU-BAYER-2014-073089

PATIENT
  Age: 82 Year
  Sex: Female

DRUGS (8)
  1. XARELTO [Suspect]
     Indication: DEEP VEIN THROMBOSIS
     Dosage: 20 MG, QD
     Dates: start: 20130802, end: 20140314
  2. XARELTO [Interacting]
     Indication: EMBOLISM VENOUS
  3. ASPIRIN PROTECT [Interacting]
     Route: 048
  4. FRONTIN [Concomitant]
  5. ADEXOR MR [Concomitant]
     Dosage: 1 DF, BID
  6. COAPROVEL [Concomitant]
     Dosage: 2X150/12.5 MG
  7. TALLITON [Concomitant]
     Dosage: 12.5 MG, BID
  8. NITROMINT RETARD [Concomitant]
     Dosage: ONCE IN EVENING

REACTIONS (6)
  - Somnolence [Recovered/Resolved]
  - Vertigo [Recovered/Resolved]
  - Confusional state [Recovered/Resolved]
  - Normochromic normocytic anaemia [Recovered/Resolved]
  - Pneumonia [Recovered/Resolved]
  - Drug interaction [None]
